FAERS Safety Report 7901844 (Version 2)
Quarter: 2013Q2

REPORT INFORMATION
  Report Type: Report from Study
  Country: MX (occurrence: MX)
  Receive Date: 20110418
  Receipt Date: 20130603
  Transmission Date: 20140414
  Serious: No
  Sender: FDA-Public Use
  Company Number: PHHY2011MX28429

PATIENT
  Age: 72 Year
  Sex: Female

DRUGS (1)
  1. CO-DIOVAN [Suspect]
     Indication: HYPERTENSION
     Dosage: 1 DF, (80/12.5 MG)
     Dates: start: 20101215

REACTIONS (3)
  - Polyuria [Unknown]
  - Dehydration [Unknown]
  - Muscle spasms [Unknown]
